FAERS Safety Report 4386908-4 (Version None)
Quarter: 2004Q2

REPORT INFORMATION
  Report Type: 
  Country: None (occurrence: None)
  Receive Date: 20040628
  Receipt Date: 20040628
  Transmission Date: 20050107
  Serious: Yes (Other)
  Sender: FDA-Public Use
  Company Number: None

PATIENT
  Age: 48 Year
  Sex: Female
  Weight: 52.6173 kg

DRUGS (13)
  1. METOCLOPRAMIDE [Suspect]
     Indication: INTESTINAL HYPOMOTILITY
     Dosage: PO
     Route: 048
  2. AMYLASE-LIPASE-PROTASE [Concomitant]
  3. DIVALPROEX SODIUM [Concomitant]
  4. BEANO [Concomitant]
  5. ETIDRONATE DISODIUM [Concomitant]
  6. GOLYTELY [Concomitant]
  7. LEVOTHYROXINE SODIUM [Concomitant]
  8. OYSTER CALCIUM [Concomitant]
  9. MULTIPLE VITAMIN [Concomitant]
  10. VIOXX [Concomitant]
  11. PANTOPRAZOLE [Concomitant]
  12. TEGASEROD [Concomitant]
  13. ACETAMINOPHEN [Concomitant]

REACTIONS (2)
  - OXYGEN SATURATION DECREASED [None]
  - SULPHAEMOGLOBINAEMIA [None]
